FAERS Safety Report 7247656-6 (Version None)
Quarter: 2011Q1

REPORT INFORMATION
  Report Type: 
  Country: None (occurrence: None)
  Receive Date: 20110127
  Receipt Date: 20101213
  Transmission Date: 20110831
  Serious: Yes (Death, Hospitalization, Other)
  Sender: FDA-Public Use
  Company Number: US-BAXTER-2009BH019527

PATIENT
  Age: 64 Year
  Sex: Male

DRUGS (22)
  1. SYNTHROID [Concomitant]
     Indication: PRODUCT USED FOR UNKNOWN INDICATION
     Route: 048
  2. COREG [Concomitant]
     Indication: PRODUCT USED FOR UNKNOWN INDICATION
     Route: 048
  3. HEPARIN SODIUM INJECTION [Suspect]
     Indication: INTRAVENOUS CATHETER MANAGEMENT
     Route: 040
     Dates: start: 20071119, end: 20071119
  4. HEPARIN SODIUM INJECTION [Suspect]
     Route: 041
     Dates: start: 20071119
  5. PROCRIT [Concomitant]
     Indication: PRODUCT USED FOR UNKNOWN INDICATION
     Route: 065
  6. ASA [Concomitant]
     Indication: PRODUCT USED FOR UNKNOWN INDICATION
     Route: 065
  7. HUMALOG [Concomitant]
     Indication: PRODUCT USED FOR UNKNOWN INDICATION
     Route: 058
  8. NEPHROCAPS [Concomitant]
     Indication: PRODUCT USED FOR UNKNOWN INDICATION
     Route: 048
  9. HEPARIN SODIUM INJECTION [Suspect]
     Route: 041
     Dates: start: 20071119
  10. ISOSORBIDE DINITRATE [Concomitant]
     Indication: PRODUCT USED FOR UNKNOWN INDICATION
     Route: 048
  11. HEPARIN SODIUM INJECTION [Suspect]
     Route: 042
     Dates: start: 20071201, end: 20071201
  12. ATORVASTATIN [Concomitant]
     Indication: PRODUCT USED FOR UNKNOWN INDICATION
     Route: 048
  13. ESOMEPRAZOLE [Concomitant]
     Indication: PRODUCT USED FOR UNKNOWN INDICATION
     Route: 048
  14. TRIAMCINOLONE [Concomitant]
     Indication: PRODUCT USED FOR UNKNOWN INDICATION
     Route: 061
  15. DEMADEX [Concomitant]
     Indication: PRODUCT USED FOR UNKNOWN INDICATION
     Route: 048
  16. ZESTRIL [Concomitant]
     Indication: PRODUCT USED FOR UNKNOWN INDICATION
     Route: 065
  17. SPIRONOLACTONE [Concomitant]
     Indication: PRODUCT USED FOR UNKNOWN INDICATION
     Route: 048
  18. HEPARIN SODIUM INJECTION [Suspect]
     Indication: CARDIAC FAILURE
     Route: 040
     Dates: start: 20071119, end: 20071119
  19. ALLOPURINOL [Concomitant]
     Indication: PRODUCT USED FOR UNKNOWN INDICATION
     Route: 048
  20. LANTUS [Concomitant]
     Indication: PRODUCT USED FOR UNKNOWN INDICATION
     Route: 058
  21. HEPARIN SODIUM INJECTION [Suspect]
     Route: 042
     Dates: start: 20071201, end: 20071201
  22. HYDRALAZINE HCL [Concomitant]
     Indication: PRODUCT USED FOR UNKNOWN INDICATION
     Route: 048

REACTIONS (9)
  - CARDIAC FAILURE [None]
  - NAUSEA [None]
  - CARDIAC FAILURE CONGESTIVE [None]
  - INFECTION [None]
  - DYSGEUSIA [None]
  - FATIGUE [None]
  - RENAL FAILURE CHRONIC [None]
  - HYPOTENSION [None]
  - BLOOD DISORDER [None]
